FAERS Safety Report 5168545-7 (Version None)
Quarter: 2006Q4

REPORT INFORMATION
  Report Type: 
  Country: None (occurrence: None)
  Receive Date: 20061208
  Receipt Date: 20061129
  Transmission Date: 20070319
  Serious: Yes (Hospitalization)
  Sender: FDA-Public Use
  Company Number: AU-ABBOTT-06P-008-0351948-01

PATIENT
  Sex: Male
  Weight: 68 kg

DRUGS (8)
  1. KALETRA [Suspect]
     Indication: HIV INFECTION
     Route: 048
     Dates: start: 20060114
  2. TRUVADA [Concomitant]
     Indication: HIV INFECTION
     Dates: start: 20060114
  3. LOPERAMIDE HYDROCHLORIDE [Concomitant]
     Indication: DIARRHOEA
     Dates: start: 20060116
  4. CODAFEN [Concomitant]
     Indication: ABDOMINAL PAIN
     Dates: start: 20060129
  5. PROTRACT [Concomitant]
     Indication: ABDOMINAL PAIN
     Dates: start: 20060209
  6. PAROXETINE HYDROCHLORIDE [Concomitant]
     Indication: DEPRESSION
     Dates: start: 20060807
  7. SALBUTAMOL [Concomitant]
     Indication: ASTHMA
  8. MAYALON [Concomitant]
     Indication: NAUSEA
     Dates: start: 20060123

REACTIONS (3)
  - ABDOMINAL PAIN LOWER [None]
  - ESCHERICHIA URINARY TRACT INFECTION [None]
  - NAUSEA [None]
